FAERS Safety Report 7252066-1 (Version None)
Quarter: 2011Q1

REPORT INFORMATION
  Report Type: 
  Country: None (occurrence: None)
  Receive Date: 20110128
  Receipt Date: 20100429
  Transmission Date: 20110831
  Serious: No
  Sender: FDA-Public Use
  Company Number: US-ABBOTT-10P-163-0641735-00

PATIENT
  Sex: Female
  Weight: 43.3 kg

DRUGS (5)
  1. HUMIRA [Suspect]
     Indication: JUVENILE ARTHRITIS
     Dates: start: 20090401, end: 20100101
  2. METHOTREXATE [Concomitant]
     Indication: JUVENILE ARTHRITIS
  3. NAPROXEN [Concomitant]
     Indication: JUVENILE ARTHRITIS
  4. LEVOTHYROXINE SODIUM [Concomitant]
     Indication: AUTOIMMUNE THYROIDITIS
  5. FOLIC ACID [Concomitant]
     Indication: JUVENILE ARTHRITIS

REACTIONS (5)
  - NAUSEA [None]
  - URTICARIA [None]
  - PRURITUS [None]
  - RASH [None]
  - VOMITING [None]
